FAERS Safety Report 7874456-6 (Version None)
Quarter: 2011Q4

REPORT INFORMATION
  Report Type: 
  Country: None (occurrence: None)
  Receive Date: 20111030
  Receipt Date: 20110520
  Transmission Date: 20120403
  Serious: No
  Sender: FDA-Public Use
  Company Number: US-AMGEN-USASP2011015491

PATIENT
  Age: 52 Year
  Sex: Female

DRUGS (4)
  1. GLIMEPIRIDE [Concomitant]
     Dosage: 2 MG, UNK
     Route: 048
  2. VITAMIN D [Concomitant]
     Route: 048
  3. ENBREL [Suspect]
     Indication: PSORIASIS
     Dosage: 50 MG, 2 TIMES/WK
     Dates: start: 20101208
  4. MEFORMIN [Concomitant]
     Dosage: 1000 MG, UNK
     Route: 048

REACTIONS (2)
  - DRUG INEFFECTIVE [None]
  - PSORIASIS [None]
